FAERS Safety Report 22598532 (Version 1)
Quarter: 2023Q2

REPORT INFORMATION
  Report Type: Other
  Country: CA (occurrence: CA)
  Receive Date: 20230614
  Receipt Date: 20230614
  Transmission Date: 20230721
  Serious: Yes (Hospitalization, Other)
  Sender: FDA-Public Use
  Company Number: CA-CELLTRION INC.-2023CA011890

PATIENT

DRUGS (3)
  1. ADALIMUMAB [Suspect]
     Active Substance: ADALIMUMAB
     Indication: Rheumatoid arthritis
     Dosage: 40 MG
     Route: 065
  2. NAPROXEN [Concomitant]
     Active Substance: NAPROXEN
     Dosage: 550 MILLIGRAM, AS REQUIRED
     Route: 065
  3. ROSUVASTATIN [Concomitant]
     Active Substance: ROSUVASTATIN
     Dosage: 10 MG, EVERY 1 DAYS
     Route: 065

REACTIONS (3)
  - Ill-defined disorder [Not Recovered/Not Resolved]
  - Flatulence [Not Recovered/Not Resolved]
  - COVID-19 [Not Recovered/Not Resolved]
